FAERS Safety Report 7867999-2 (Version None)
Quarter: 2011Q4

REPORT INFORMATION
  Report Type: 
  Country: None (occurrence: None)
  Receive Date: 20111028
  Receipt Date: 20111019
  Transmission Date: 20120403
  Serious: Yes (Hospitalization)
  Sender: FDA-Public Use
  Company Number: MX-BAYER-2011-099191

PATIENT
  Age: 28 Year
  Sex: Female
  Weight: 39 kg

DRUGS (8)
  1. SULFASALAZINE [Concomitant]
     Indication: JUVENILE ARTHRITIS
     Dosage: 1 G, BID
     Route: 048
  2. OMEPRAZOLE [Concomitant]
     Dosage: 20 MG, QD
     Route: 048
     Dates: start: 20110407
  3. FOLIC ACID [Concomitant]
     Dosage: 4 MG, 4IW
     Route: 048
  4. FERROUS FUMARATE [Concomitant]
     Dosage: 200 MG, QD
     Route: 048
     Dates: start: 20110506
  5. ULTRAVIST 150 [Suspect]
     Indication: HAEMATURIA
     Dosage: 50 ML, ONCE
     Route: 042
     Dates: start: 20111010, end: 20111010
  6. METHOTREXATE [Concomitant]
     Indication: JUVENILE ARTHRITIS
     Dosage: 2.5 MG, 4IW
     Route: 048
  7. PREDNISONE [Concomitant]
     Indication: JUVENILE ARTHRITIS
     Dosage: 5 MG, QD
     Route: 048
  8. OMEPRAZOLE [Concomitant]
     Dosage: 40 MG, QD
     Route: 042
     Dates: start: 20111010, end: 20111013

REACTIONS (8)
  - HYPOKALAEMIA [None]
  - HYPOTENSION [None]
  - DISORIENTATION [None]
  - NAUSEA [None]
  - PYREXIA [None]
  - ERYTHEMA [None]
  - VOMITING [None]
  - FACE OEDEMA [None]
